FAERS Safety Report 8835981 (Version 2)
Quarter: 2012Q4

REPORT INFORMATION
  Report Type: 
  Country: US (occurrence: US)
  Receive Date: 20121011
  Receipt Date: 20121129
  Transmission Date: 20130627
  Serious: Yes (Hospitalization)
  Sender: FDA-Public Use
  Company Number: US-PFIZER INC-2012251042

PATIENT
  Age: 56 Year
  Sex: Male
  Weight: 55.56 kg

DRUGS (13)
  1. CHANTIX [Suspect]
     Indication: SMOKING CESSATION THERAPY
     Dosage: UNK
     Route: 048
     Dates: start: 201209, end: 201210
  2. NORVASC [Concomitant]
     Dosage: UNK
  3. COREG [Concomitant]
     Dosage: UNK
  4. PRAVACHOL [Concomitant]
     Dosage: UNK
  5. ASPIRIN [Concomitant]
     Dosage: UNK
  6. LISINOPRIL [Concomitant]
     Dosage: UNK
  7. HYDROCODONE [Concomitant]
     Dosage: UNK
  8. SOMA [Concomitant]
     Dosage: UNK
  9. NEXIUM [Concomitant]
     Dosage: UNK
  10. VALIUM [Concomitant]
     Dosage: UNK
  11. REGLAN [Concomitant]
     Dosage: UNK
  12. VENTOLIN [Concomitant]
     Dosage: UNK
  13. SPIRIVA [Concomitant]
     Dosage: UNK

REACTIONS (2)
  - Depression [Unknown]
  - Emotional distress [Unknown]
